FAERS Safety Report 12669735 (Version 2)
Quarter: 2016Q3

REPORT INFORMATION
  Report Type: Spontaneous
  Country: DE (occurrence: DE)
  Receive Date: 20160819
  Receipt Date: 20160917
  Transmission Date: 20161109
  Serious: Yes (Other)
  Sender: FDA-Public Use
  Company Number: DE-AMGEN-DEUSP2016108503

PATIENT
  Age: 57 Year
  Sex: Female

DRUGS (3)
  1. ENBREL [Suspect]
     Active Substance: ETANERCEPT
     Indication: RHEUMATOID ARTHRITIS
     Dosage: 50 MG, 1X/WEEK
     Route: 065
     Dates: start: 20160404, end: 201606
  2. MTX [Concomitant]
     Active Substance: METHOTREXATE SODIUM
     Dosage: UNK
  3. ENBREL [Suspect]
     Active Substance: ETANERCEPT
     Dosage: 50 MG, 1X/WEEK
     Route: 065
     Dates: start: 2016, end: 2016

REACTIONS (2)
  - Intervertebral disc protrusion [Unknown]
  - Injection site reaction [Not Recovered/Not Resolved]

NARRATIVE: CASE EVENT DATE: 2016
